FAERS Safety Report 6698684-0 (Version None)
Quarter: 2010Q2

REPORT INFORMATION
  Report Type: 
  Country: None (occurrence: None)
  Receive Date: 20100427
  Receipt Date: 20090223
  Transmission Date: 20101027
  Serious: No
  Sender: FDA-Public Use
  Company Number: US-ASTRAZENECA-2009UW00958

PATIENT
  Sex: Female
  Weight: 62.6 kg

DRUGS (2)
  1. ZOMIG [Suspect]
     Indication: MIGRAINE
     Dosage: 5 MG
     Route: 048
  2. LOVASTATIN [Concomitant]

REACTIONS (6)
  - DRUG INEFFECTIVE [None]
  - EYE DISORDER [None]
  - HEADACHE [None]
  - LYMPHADENOPATHY [None]
  - SOMNOLENCE [None]
  - YAWNING [None]
